FAERS Safety Report 8061714-8 (Version None)
Quarter: 2012Q1

REPORT INFORMATION
  Report Type: 
  Country: None (occurrence: None)
  Receive Date: 20120123
  Receipt Date: 20120113
  Transmission Date: 20120608
  Serious: Yes (Hospitalization)
  Sender: FDA-Public Use
  Company Number: 2006BI000082

PATIENT
  Age: 38 Year
  Sex: Female

DRUGS (2)
  1. AVONEX [Suspect]
     Indication: MULTIPLE SCLEROSIS
     Route: 030
     Dates: start: 20040528, end: 20050325
  2. AVONEX [Suspect]
     Route: 030
     Dates: start: 20050916

REACTIONS (3)
  - PRE-ECLAMPSIA [None]
  - POST PROCEDURAL HAEMATOMA [None]
  - FOETAL GROWTH RESTRICTION [None]
